FAERS Safety Report 21580823 (Version 1)
Quarter: 2022Q4

REPORT INFORMATION
  Report Type: Spontaneous
  Country: US (occurrence: US)
  Receive Date: 20221111
  Receipt Date: 20221111
  Transmission Date: 20230113
  Serious: Yes (Hospitalization, Other)
  Sender: FDA-Public Use
  Company Number: US-AVET LIFESCIENCES LTD-2022-AVET-000199

PATIENT
  Age: 43 Year
  Sex: Male

DRUGS (2)
  1. TACROLIMUS [Interacting]
     Active Substance: TACROLIMUS
     Indication: Heart transplant
  2. PAXLOVID [Interacting]
     Active Substance: NIRMATRELVIR\RITONAVIR
     Indication: Product used for unknown indication

REACTIONS (7)
  - Drug interaction [Unknown]
  - Toxicity to various agents [Recovering/Resolving]
  - Drug level increased [Recovering/Resolving]
  - Hyperkalaemia [Recovering/Resolving]
  - Metabolic acidosis [Recovering/Resolving]
  - Acute kidney injury [Recovering/Resolving]
  - Pancytopenia [Recovering/Resolving]
